FAERS Safety Report 8401588-6 (Version None)
Quarter: 2012Q2

REPORT INFORMATION
  Report Type: 
  Country: None (occurrence: None)
  Receive Date: 20120601
  Receipt Date: 20120522
  Transmission Date: 20120825
  Serious: Yes (Hospitalization)
  Sender: FDA-Public Use
  Company Number: JP-VERTEX PHARMACEUTICALS INC.-AE-2012-005597

PATIENT
  Age: 61 Year
  Sex: Male

DRUGS (10)
  1. REBETOL [Concomitant]
     Route: 048
     Dates: start: 20120313, end: 20120318
  2. ALLOPURINOL [Concomitant]
     Route: 048
  3. TELAVIC (TELAPREVIR) [Suspect]
     Indication: HEPATITIS C
     Route: 048
     Dates: start: 20120221, end: 20120318
  4. REBETOL [Concomitant]
     Indication: HEPATITIS C
     Route: 048
     Dates: start: 20120221, end: 20120312
  5. PEG-INTRON [Concomitant]
     Route: 051
     Dates: start: 20120319, end: 20120401
  6. TELAVIC (TELAPREVIR) [Suspect]
     Route: 048
     Dates: start: 20120319, end: 20120401
  7. PEG-INTRON [Concomitant]
     Indication: HEPATITIS C
     Route: 051
     Dates: start: 20120221, end: 20120318
  8. REBETOL [Concomitant]
     Route: 048
     Dates: start: 20120319
  9. REBETOL [Concomitant]
     Route: 048
     Dates: end: 20120401
  10. XYZAL [Concomitant]
     Route: 048
     Dates: start: 20120221

REACTIONS (7)
  - URINARY BLADDER HAEMORRHAGE [None]
  - BLOOD URIC ACID INCREASED [None]
  - PLATELET COUNT DECREASED [None]
  - BLOOD CREATININE INCREASED [None]
  - ANAEMIA [None]
  - CYSTITIS HAEMORRHAGIC [None]
  - NAUSEA [None]
